FAERS Safety Report 5805759-4 (Version None)
Quarter: 2008Q3

REPORT INFORMATION
  Report Type: 
  Country: None (occurrence: None)
  Receive Date: 20080702
  Receipt Date: 20070302
  Transmission Date: 20090109
  Serious: Yes (Hospitalization)
  Sender: FDA-Public Use
  Company Number: 2006-BP-05135BP

PATIENT
  Age: 42 Year
  Sex: Male

DRUGS (15)
  1. MIRAPEX [Suspect]
     Indication: PARKINSON'S DISEASE
     Dosage: SEE TEXT (0.25 MG,2 TABS BID),PO
     Route: 047
     Dates: start: 20020301, end: 20050609
  2. PERCOCET [Concomitant]
  3. SINEMET [Concomitant]
  4. STALEVO (STALEVO) [Concomitant]
  5. FLU SHIELD (INFLUENZA VACCINE) [Concomitant]
  6. AMOXICILLIN (AMOXICILLIN) (TA) [Concomitant]
  7. NIDERAL (PROPRANOLOL) (TA) [Concomitant]
  8. NORTRIPTYLINE (NORTRIPTYLINE) (KA) [Concomitant]
  9. ELDEPRYL (SELEGILINE HYDROCHLORIDE) (KA) [Concomitant]
  10. ANESTHESIA MEDICATIONS (ANESTHETICS, GENERAL) [Concomitant]
  11. MORPHINE [Concomitant]
  12. KEFZOL [Concomitant]
  13. TORADOL [Concomitant]
  14. COMTAN (ENTACAPONE) (TA) [Concomitant]
  15. REQUIP [Concomitant]

REACTIONS (18)
  - ANXIETY [None]
  - BENIGN PROSTATIC HYPERPLASIA [None]
  - CHANGE OF BOWEL HABIT [None]
  - DEPRESSION [None]
  - DERMAL CYST [None]
  - FATIGUE [None]
  - INITIAL INSOMNIA [None]
  - INTERVERTEBRAL DISC DISORDER [None]
  - INTERVERTEBRAL DISC PROTRUSION [None]
  - LIBIDO INCREASED [None]
  - LIMB INJURY [None]
  - NODULE [None]
  - OBSESSIVE-COMPULSIVE DISORDER [None]
  - PATHOLOGICAL GAMBLING [None]
  - RASH [None]
  - RASH PAPULAR [None]
  - RECTAL HAEMORRHAGE [None]
  - UPPER RESPIRATORY TRACT INFECTION [None]
